FAERS Safety Report 17993808 (Version 1)
Quarter: 2020Q3

REPORT INFORMATION
  Report Type: Spontaneous
  Country: US (occurrence: US)
  Receive Date: 20200707
  Receipt Date: 20200707
  Transmission Date: 20201103
  Serious: Yes (Other)
  Sender: FDA-Public Use
  Company Number: None

PATIENT
  Age: 46 Year
  Sex: Male
  Weight: 159.8 kg

DRUGS (13)
  1. ONDANSETRON [Concomitant]
     Active Substance: ONDANSETRON
     Dates: start: 20200626, end: 20200703
  2. INSULIN LISPRO [Concomitant]
     Active Substance: INSULIN LISPRO
     Dates: start: 20200627, end: 20200703
  3. HEPARIN 5000 [Concomitant]
     Dates: start: 20200629, end: 20200702
  4. MOMETASONE [Concomitant]
     Active Substance: MOMETASONE
     Dates: start: 20200627, end: 20200703
  5. HYDRALAZINE [Concomitant]
     Active Substance: HYDRALAZINE HYDROCHLORIDE
     Dates: start: 20200702, end: 20200702
  6. INSULIN GLARGINE [Concomitant]
     Active Substance: INSULIN GLARGINE
     Dates: start: 20200630, end: 20200703
  7. DEXAMETHASONE 10 MG [Concomitant]
     Dates: start: 20200630, end: 20200703
  8. ALBUTEROL. [Concomitant]
     Active Substance: ALBUTEROL
     Dates: start: 20200627, end: 20200703
  9. CEFTRIAXONE 1 GM [Concomitant]
     Active Substance: CEFTRIAXONE
     Dates: start: 20200630, end: 20200702
  10. REMDESIVIR. [Suspect]
     Active Substance: REMDESIVIR
     Indication: COVID-19
     Dates: start: 20200701, end: 20200702
  11. ENOXAPARIN 150 MG [Concomitant]
     Dates: start: 20200702
  12. ACETAMINOPHEN 650 [Concomitant]
     Dates: start: 20200628, end: 20200703
  13. AROMATIC INHALER [Concomitant]
     Dates: start: 20200626, end: 20200703

REACTIONS (1)
  - Alanine aminotransferase increased [None]

NARRATIVE: CASE EVENT DATE: 20200703
